FAERS Safety Report 4590592-4 (Version None)
Quarter: 2005Q1

REPORT INFORMATION
  Report Type: 
  Country: None (occurrence: None)
  Receive Date: 20050224
  Receipt Date: 20050221
  Transmission Date: 20050727
  Serious: Yes (Other)
  Sender: FDA-Public Use
  Company Number: JP-GLAXOSMITHKLINE-B0372571A

PATIENT
  Age: 70 Year
  Sex: Female

DRUGS (5)
  1. PAXIL [Suspect]
     Indication: DEPRESSION
     Dosage: 5MG PER DAY
     Route: 048
     Dates: end: 20050221
  2. DOGMATYL [Suspect]
     Route: 065
     Dates: end: 20050221
  3. LORAZEPAM [Suspect]
     Route: 048
     Dates: end: 20050221
  4. HALCION [Suspect]
     Route: 048
     Dates: end: 20050221
  5. GASTER [Suspect]
     Route: 065
     Dates: end: 20050221

REACTIONS (1)
  - INTERSTITIAL LUNG DISEASE [None]
